FAERS Safety Report 13737789 (Version 1)
Quarter: 2017Q3

REPORT INFORMATION
  Report Type: Spontaneous
  Country: US (occurrence: US)
  Receive Date: 20170710
  Receipt Date: 20170710
  Transmission Date: 20171127
  Serious: Yes (Hospitalization, Other)
  Sender: FDA-Public Use
  Company Number: US-SAOL THERAPEUTICS-2016SAO00848

PATIENT
  Age: 33 Year
  Sex: Male

DRUGS (3)
  1. BACLOFEN. [Suspect]
     Active Substance: BACLOFEN
     Dosage: 1400 ?G, \DAY
  2. BACLOFEN. [Suspect]
     Active Substance: BACLOFEN
     Dosage: 550 ?G, \DAY
  3. LIORESAL [Suspect]
     Active Substance: BACLOFEN
     Dosage: 200 ?G, \DAY
     Route: 037

REACTIONS (3)
  - Device occlusion [Recovered/Resolved]
  - Drug withdrawal syndrome [Unknown]
  - Implant site scar [Recovered/Resolved]

NARRATIVE: CASE EVENT DATE: 201603
